FAERS Safety Report 9930262 (Version 1)
Quarter: 2014Q1

REPORT INFORMATION
  Report Type: Spontaneous
  Country: US (occurrence: US)
  Receive Date: 20140227
  Receipt Date: 20140227
  Transmission Date: 20141002
  Serious: No
  Sender: FDA-Public Use
  Company Number: US-AMGEN-USASP2013080207

PATIENT
  Age: 58 Year
  Sex: Female
  Weight: 59.86 kg

DRUGS (9)
  1. ENBREL [Suspect]
     Indication: PRODUCT USED FOR UNKNOWN INDICATION
     Dosage: 50 MG, QWK
     Route: 058
  2. PLAQUENIL                          /00072602/ [Concomitant]
     Dosage: 200 MG, UNK
  3. METHOTREXATE [Concomitant]
     Dosage: UNK
  4. LEUCOVORIN CA [Concomitant]
     Dosage: 200 MG, UNK
  5. ATENOLOL [Concomitant]
     Dosage: 25 MG, UNK
  6. PREDNISONE [Concomitant]
     Dosage: UNK
  7. IBUPROFEN [Concomitant]
     Dosage: UNK
  8. CALCIUM [Concomitant]
     Dosage: UNK
  9. VITAMIN C                          /00008001/ [Concomitant]
     Dosage: 100 MG, UNK

REACTIONS (6)
  - Pain [Unknown]
  - Local swelling [Unknown]
  - Erythema [Unknown]
  - Inflammation [Unknown]
  - Pain in extremity [Unknown]
  - Vertigo [Unknown]
